FAERS Safety Report 13921851 (Version 1)
Quarter: 2017Q3

REPORT INFORMATION
  Report Type: Spontaneous
  Country: NL (occurrence: NL)
  Receive Date: 20170830
  Receipt Date: 20170830
  Transmission Date: 20171127
  Serious: Yes (Other)
  Sender: FDA-Public Use
  Company Number: NL-ELI_LILLY_AND_COMPANY-NL201708008074

PATIENT
  Age: 10 Year
  Sex: Male
  Weight: 32 kg

DRUGS (3)
  1. STRATTERA [Suspect]
     Active Substance: ATOMOXETINE HYDROCHLORIDE
     Dosage: 25 MG, UNKNOWN
     Route: 065
  2. STRATTERA [Suspect]
     Active Substance: ATOMOXETINE HYDROCHLORIDE
     Indication: ATTENTION DEFICIT/HYPERACTIVITY DISORDER
     Dosage: 18 MG, UNKNOWN
     Route: 065
  3. STRATTERA [Suspect]
     Active Substance: ATOMOXETINE HYDROCHLORIDE
     Dosage: 40 MG, UNKNOWN
     Route: 065
     Dates: start: 20170602, end: 20170802

REACTIONS (10)
  - Aggression [Recovering/Resolving]
  - Palpitations [Unknown]
  - Depressed mood [Recovering/Resolving]
  - Obsessive-compulsive disorder [Unknown]
  - Mood swings [Recovering/Resolving]
  - Arrhythmia [Recovering/Resolving]
  - Self esteem decreased [Recovering/Resolving]
  - Anger [Unknown]
  - Agitation [Recovering/Resolving]
  - Negative thoughts [Unknown]

NARRATIVE: CASE EVENT DATE: 20170701
